FAERS Safety Report 21310998 (Version 1)
Quarter: 2022Q3

REPORT INFORMATION
  Report Type: Spontaneous
  Country: US (occurrence: None)
  Receive Date: 20220909
  Receipt Date: 20220909
  Transmission Date: 20221027
  Serious: No
  Sender: FDA-Public Use
  Company Number: US-ARIS GLOBAL-202112-2308

PATIENT
  Sex: Female

DRUGS (14)
  1. OXERVATE [Suspect]
     Active Substance: CENEGERMIN-BKBJ
     Indication: Neurotrophic keratopathy
     Route: 047
     Dates: start: 20211123
  2. LISINOPRIL [Concomitant]
     Active Substance: LISINOPRIL
  3. HUMALOG [Concomitant]
     Active Substance: INSULIN LISPRO
     Dosage: 100/ML VIAL
  4. PROLIA [Concomitant]
     Active Substance: DENOSUMAB
     Dosage: SYRINGE
  5. ATORVASTATIN CALCIUM [Concomitant]
     Active Substance: ATORVASTATIN CALCIUM
  6. LEVOTHYROXINE [Concomitant]
     Active Substance: LEVOTHYROXINE
  7. BUMETANIDE [Concomitant]
     Active Substance: BUMETANIDE
  8. REGLAN [Concomitant]
     Active Substance: METOCLOPRAMIDE HYDROCHLORIDE
  9. OMEPRAZOLE [Concomitant]
     Active Substance: OMEPRAZOLE
  10. VITAMIN D-400 [Concomitant]
  11. CALCIUM [Concomitant]
     Active Substance: CALCIUM
     Dosage: 500 (1250)
  12. MILK OF MAGNESIA [Concomitant]
     Active Substance: MAGNESIUM HYDROXIDE
  13. ALLOPURINOL [Concomitant]
     Active Substance: ALLOPURINOL
  14. COENZYME Q10 [Concomitant]
     Active Substance: DIETARY SUPPLEMENT\UBIDECARENONE

REACTIONS (1)
  - Visual impairment [Unknown]
